FAERS Safety Report 8647159 (Version 3)
Quarter: 2012Q4

REPORT INFORMATION
  Report Type: 
  Country: US (occurrence: US)
  Receive Date: 20120703
  Receipt Date: 20121109
  Transmission Date: 20130627
  Serious: Yes (Other)
  Sender: FDA-Public Use
  Company Number: US-PFIZER INC-2012155178

PATIENT
  Age: 46 Year
  Sex: Female
  Weight: 68 kg

DRUGS (12)
  1. EFFEXOR XR [Suspect]
     Indication: DEPRESSION
     Dosage: 300 mg in a day
  2. EFFEXOR XR [Suspect]
     Dosage: 150 mg in a day
     Dates: start: 201206
  3. NAPROXEN [Suspect]
     Indication: ARTHRITIS
     Dosage: UNK
  4. NAPROXEN [Suspect]
     Dosage: 500 mg, UNK
  5. KLONOPIN [Suspect]
     Indication: ANXIETY ATTACK
     Dosage: 1 mg, 3x/day
  6. CHLORTHALIDONE [Concomitant]
     Indication: BLOOD PRESSURE HIGH
     Dosage: 25 mg, daily
  7. FLEXERIL [Concomitant]
     Indication: MUSCLE SPASMS
     Dosage: UNK
  8. GEMFIBROZIL [Concomitant]
     Indication: BLOOD CHOLESTEROL ABNORMAL
     Dosage: UNK
  9. DILTIAZEM [Concomitant]
     Indication: PALPITATIONS
     Dosage: 180 mg, daily
     Route: 048
  10. NORCO [Concomitant]
     Indication: HERNIATED DISC
     Dosage: 10/325 mg, 4x/day
  11. NORCO [Concomitant]
     Indication: STIFFNESS AROUND BACK
  12. NEURONTIN [Concomitant]
     Indication: NERVE DAMAGE
     Dosage: UNK

REACTIONS (13)
  - Haematochezia [Unknown]
  - Uterine disorder [Unknown]
  - Fall [Unknown]
  - Myocardial infarction [Unknown]
  - Depression [Unknown]
  - Epistaxis [Unknown]
  - Anxiety [Unknown]
  - Low density lipoprotein increased [Unknown]
  - High density lipoprotein decreased [Unknown]
  - Panic reaction [Unknown]
  - Feeling abnormal [Unknown]
  - Insomnia [Unknown]
  - Dyspepsia [Unknown]
